FAERS Safety Report 9390700 (Version 1)
Quarter: 2013Q3

REPORT INFORMATION
  Report Type: Spontaneous
  Country: CA (occurrence: CA)
  Receive Date: 20130709
  Receipt Date: 20130709
  Transmission Date: 20140515
  Serious: Yes (Other)
  Sender: FDA-Public Use
  Company Number: CA-AMGEN-CANSP2013046914

PATIENT
  Age: 75 Year
  Sex: Female

DRUGS (1)
  1. NPLATE [Suspect]
     Indication: IMMUNE THROMBOCYTOPENIC PURPURA
     Dosage: UNK
     Dates: start: 2010

REACTIONS (2)
  - Intestinal obstruction [Recovered/Resolved]
  - Haemorrhage [Recovered/Resolved]
